FAERS Safety Report 25998934 (Version 1)
Quarter: 2025Q4

REPORT INFORMATION
  Report Type: Spontaneous
  Country: EU (occurrence: EU)
  Receive Date: 20251105
  Receipt Date: 20251105
  Transmission Date: 20260118
  Serious: Yes (Other)
  Sender: GILEAD
  Company Number: EU-GILEAD-2025-0734187

PATIENT
  Age: 61 Year
  Sex: Female

DRUGS (2)
  1. SACITUZUMAB GOVITECAN-HZIY [Suspect]
     Active Substance: SACITUZUMAB GOVITECAN-HZIY
     Indication: Hormone receptor positive breast cancer
     Dosage: 10 MG/KG ON DAYS 1 AND 8 EVERY 21 DAYS
     Route: 065
     Dates: start: 202406
  2. FILGRASTIM [Concomitant]
     Active Substance: FILGRASTIM
     Indication: Prophylaxis
     Dosage: 300 UG
     Route: 058

REACTIONS (2)
  - Disease progression [Unknown]
  - Diarrhoea [Recovering/Resolving]
